FAERS Safety Report 8435912-5 (Version None)
Quarter: 2012Q2

REPORT INFORMATION
  Report Type: 
  Country: None (occurrence: None)
  Receive Date: 20120614
  Receipt Date: 20120604
  Transmission Date: 20120825
  Serious: Yes (Hospitalization, Other)
  Sender: FDA-Public Use
  Company Number: US-JNJFOC-20120602811

PATIENT
  Sex: Female
  Weight: 43.8 kg

DRUGS (6)
  1. PREDNISONE TAB [Concomitant]
  2. METRONIDAZOLE [Concomitant]
  3. MESALAMINE [Concomitant]
     Route: 048
  4. ANTIBIOTIC [Concomitant]
  5. INFLIXIMAB, RECOMBINANT [Suspect]
     Route: 042
     Dates: start: 20120309
  6. INFLIXIMAB, RECOMBINANT [Suspect]
     Indication: INFLAMMATORY BOWEL DISEASE
     Route: 042
     Dates: start: 20120530

REACTIONS (1)
  - CLOSTRIDIAL INFECTION [None]
